FAERS Safety Report 8245447-0 (Version None)
Quarter: 2012Q1

REPORT INFORMATION
  Report Type: 
  Country: None (occurrence: None)
  Receive Date: 20120329
  Receipt Date: 20120328
  Transmission Date: 20120608
  Serious: Yes (Hospitalization, Disabling, Other)
  Sender: FDA-Public Use
  Company Number: US-MERCK-1110USA04117

PATIENT
  Age: 69 Year
  Sex: Female
  Weight: 77 kg

DRUGS (6)
  1. VITAMINS (UNSPECIFIED) [Concomitant]
     Route: 065
  2. FOSAMAX [Suspect]
     Indication: OSTEOPENIA
     Route: 048
     Dates: start: 19950101, end: 20100101
  3. FOSAMAX [Suspect]
     Indication: OSTEOPOROSIS
     Route: 048
     Dates: start: 19950101, end: 20100101
  4. FOSAMAX [Suspect]
     Route: 065
  5. FOSAMAX [Suspect]
     Route: 065
  6. CALCIUM (UNSPECIFIED) [Concomitant]
     Route: 065

REACTIONS (40)
  - BLINDNESS [None]
  - RIB FRACTURE [None]
  - IMPAIRED HEALING [None]
  - ABDOMINAL DISCOMFORT [None]
  - BLOOD PRESSURE ABNORMAL [None]
  - CARDIAC FAILURE CONGESTIVE [None]
  - LEFT VENTRICULAR HYPERTROPHY [None]
  - FOOT FRACTURE [None]
  - BREAST CANCER [None]
  - WEIGHT DECREASED [None]
  - LUNG DISORDER [None]
  - GASTROOESOPHAGEAL REFLUX DISEASE [None]
  - ORAL INFECTION [None]
  - INTERVERTEBRAL DISC DISORDER [None]
  - GASTRITIS [None]
  - URINARY TRACT INFECTION [None]
  - HYPERTENSION [None]
  - ORAL NEOPLASM [None]
  - FEMUR FRACTURE [None]
  - CHRONIC OBSTRUCTIVE PULMONARY DISEASE [None]
  - PERICARDITIS [None]
  - TOOTH ABSCESS [None]
  - CYST [None]
  - DEPRESSION [None]
  - JOINT INJURY [None]
  - ANXIETY [None]
  - CATARACT [None]
  - SACROILIITIS [None]
  - PULMONARY OEDEMA [None]
  - FALL [None]
  - ADVERSE DRUG REACTION [None]
  - FIBULA FRACTURE [None]
  - BURSITIS [None]
  - SYNOVIAL CYST [None]
  - LOBAR PNEUMONIA [None]
  - ROTATOR CUFF SYNDROME [None]
  - LEFT ATRIAL DILATATION [None]
  - TOOTH DISORDER [None]
  - SINUSITIS [None]
  - FRACTURE NONUNION [None]
